FAERS Safety Report 8932737 (Version 1)
Quarter: 2012Q4

REPORT INFORMATION
  Report Type: 
  Country: US (occurrence: US)
  Receive Date: 20121129
  Receipt Date: 20121129
  Transmission Date: 20130627
  Serious: Yes (Other)
  Sender: FDA-Public Use
  Company Number: 2012SP003234

PATIENT
  Sex: Female

DRUGS (3)
  1. LATUDA [Suspect]
     Indication: SCHIZOPHRENIA
     Route: 048
     Dates: start: 201205
  2. LATUDA [Suspect]
     Indication: PARANOIA
     Route: 048
     Dates: start: 201205
  3. XANAX [Concomitant]
     Indication: PRODUCT USED FOR UNKNOWN INDICATION

REACTIONS (3)
  - Weight decreased [Unknown]
  - Depression [Unknown]
  - Decreased appetite [Unknown]
